FAERS Safety Report 10168052 (Version 1)
Quarter: 2014Q2

REPORT INFORMATION
  Report Type: Spontaneous
  Country: US (occurrence: US)
  Receive Date: 20140512
  Receipt Date: 20140512
  Transmission Date: 20141212
  Serious: No
  Sender: FDA-Public Use
  Company Number: US-ENDO PHARMACEUTICALS INC.-TRIP20140003

PATIENT
  Age: 32 Year
  Sex: Female

DRUGS (1)
  1. TRI-PREVIFEM TABLETS [Suspect]
     Indication: CONTRACEPTION
     Dosage: 1 TABLET
     Route: 048
     Dates: start: 201308

REACTIONS (2)
  - Nail disorder [Not Recovered/Not Resolved]
  - Hair colour changes [Not Recovered/Not Resolved]
